APPROVED DRUG PRODUCT: CLOFARABINE
Active Ingredient: CLOFARABINE
Strength: 20MG/20ML (1MG/ML)
Dosage Form/Route: SOLUTION;INTRAVENOUS
Application: A207831 | Product #001 | TE Code: AP
Applicant: GLAND PHARMA LTD
Approved: Oct 31, 2018 | RLD: No | RS: No | Type: RX